FAERS Safety Report 19242095 (Version 2)
Quarter: 2021Q2

REPORT INFORMATION
  Report Type: Report from Study
  Country: AU (occurrence: AU)
  Receive Date: 20210511
  Receipt Date: 20210517
  Transmission Date: 20210717
  Serious: Yes (Other)
  Sender: FDA-Public Use
  Company Number: AU-EMD SERONO-9236162

PATIENT
  Age: 52 Year
  Sex: Female
  Weight: 52 kg

DRUGS (1)
  1. MAVENCLAD [Suspect]
     Active Substance: CLADRIBINE
     Indication: MULTIPLE SCLEROSIS
     Dates: start: 20210216

REACTIONS (2)
  - Epistaxis [Recovered/Resolved with Sequelae]
  - Eye haemorrhage [Unknown]

NARRATIVE: CASE EVENT DATE: 20210502
